FAERS Safety Report 24981645 (Version 16)
Quarter: 2025Q2

REPORT INFORMATION
  Report Type: Spontaneous
  Country: FR (occurrence: FR)
  Receive Date: 20250218
  Receipt Date: 20250626
  Transmission Date: 20250717
  Serious: Yes (Other)
  Sender: ORGANON
  Company Number: None

PATIENT
  Sex: Female

DRUGS (22)
  1. DESLORATADINE [Suspect]
     Active Substance: DESLORATADINE
     Indication: Product used for unknown indication
     Dosage: 1 DF, QD
     Route: 065
     Dates: start: 20240415, end: 20250109
  2. DESLORATADINE [Suspect]
     Active Substance: DESLORATADINE
     Dosage: 1 DF, QD
     Route: 065
     Dates: start: 20240415
  3. ELEXACAFTOR\IVACAFTOR\TEZACAFTOR [Suspect]
     Active Substance: ELEXACAFTOR\IVACAFTOR\TEZACAFTOR
     Indication: Cystic fibrosis
     Dosage: 2 DF, QD, (100 MG/50 MG/75 MG, FILM COATED TABLET))
     Route: 064
     Dates: start: 20240415, end: 20250109
  4. ELEXACAFTOR\IVACAFTOR\TEZACAFTOR [Suspect]
     Active Substance: ELEXACAFTOR\IVACAFTOR\TEZACAFTOR
     Dosage: 2 DF, QD, (100 MG/50 MG/75 MG, FILM COATED TABLET))
     Route: 065
     Dates: start: 20240415
  5. KALYDECO [Suspect]
     Active Substance: IVACAFTOR
     Indication: Cystic fibrosis
     Dosage: 150 MG, QD
     Route: 064
     Dates: start: 20240415, end: 20250109
  6. KALYDECO [Suspect]
     Active Substance: IVACAFTOR
     Dosage: 150 MG, QD
     Route: 065
     Dates: start: 20240415
  7. PANCRELIPASE [Suspect]
     Active Substance: PANCRELIPASE
     Indication: Cystic fibrosis
     Dosage: 12 DF, QD (25,000 U, GASTRO-RESISTANT CAPSULE)
     Route: 064
     Dates: start: 20240415, end: 20250109
  8. PANCRELIPASE [Suspect]
     Active Substance: PANCRELIPASE
     Dosage: 12 DF, QD (25,000 U, GASTRO-RESISTANT CAPSULE)
     Route: 065
     Dates: start: 20240415
  9. TRIAMCINOLONE [Suspect]
     Active Substance: TRIAMCINOLONE
     Indication: Cystic fibrosis
     Dosage: 2 DF, QD
     Route: 064
     Dates: start: 20240415, end: 20250109
  10. TRIAMCINOLONE [Suspect]
     Active Substance: TRIAMCINOLONE
     Dosage: 2 DF, QD
     Route: 065
     Dates: start: 20240415
  11. BUDESONIDE [Suspect]
     Active Substance: BUDESONIDE
     Indication: Cystic fibrosis
     Dates: start: 20240415, end: 20250109
  12. BUDESONIDE [Suspect]
     Active Substance: BUDESONIDE
     Route: 065
     Dates: start: 20240415
  13. FORMOTEROL FUMARATE DIHYDRATE [Suspect]
     Active Substance: FORMOTEROL FUMARATE DIHYDRATE
     Indication: Cystic fibrosis
     Route: 064
     Dates: start: 20240415, end: 20250109
  14. FORMOTEROL FUMARATE DIHYDRATE [Suspect]
     Active Substance: FORMOTEROL FUMARATE DIHYDRATE
     Route: 065
     Dates: start: 20240415
  15. CHOLECALCIFEROL [Suspect]
     Active Substance: CHOLECALCIFEROL
     Indication: Vitamin supplementation
     Dosage: 2 DF, QMO
     Route: 064
     Dates: start: 20240415, end: 20250109
  16. CHOLECALCIFEROL [Suspect]
     Active Substance: CHOLECALCIFEROL
     Dosage: 2 DF, QMO
     Route: 065
     Dates: start: 20240415
  17. ESOMEPRAZOLE [Suspect]
     Active Substance: ESOMEPRAZOLE
     Indication: Cystic fibrosis
     Dosage: 20 MG, QD (TABLET)
     Dates: start: 20240415, end: 20250109
  18. ESOMEPRAZOLE [Suspect]
     Active Substance: ESOMEPRAZOLE
     Dosage: 20 MG, QD (TABLET)
     Route: 065
     Dates: start: 20240415
  19. IVACAFTOR\LUMACAFTOR [Suspect]
     Active Substance: IVACAFTOR\LUMACAFTOR
     Indication: Cystic fibrosis
     Route: 065
     Dates: start: 20240415
  20. PANCREATIN [Suspect]
     Active Substance: PANCRELIPASE
     Dosage: 1 DF, QD
     Route: 065
     Dates: start: 20240415
  21. BUDESONIDE\FORMOTEROL\GLYCOPYRRONIUM [Suspect]
     Active Substance: BUDESONIDE\FORMOTEROL\GLYCOPYRRONIUM
     Route: 064
     Dates: start: 20240415, end: 20250109
  22. PULMICORT TURBUHALER [Suspect]
     Active Substance: BUDESONIDE
     Indication: Cystic fibrosis
     Route: 065
     Dates: start: 20240415

REACTIONS (2)
  - Pericardial effusion [Recovered/Resolved]
  - Maternal exposure during pregnancy [Recovered/Resolved]

NARRATIVE: CASE EVENT DATE: 20240415
